FAERS Safety Report 24845063 (Version 1)
Quarter: 2025Q1

REPORT INFORMATION
  Report Type: Spontaneous
  Country: US (occurrence: None)
  Receive Date: 20250115
  Receipt Date: 20250115
  Transmission Date: 20250409
  Serious: Yes (Hospitalization)
  Sender: FDA-CTU
  Company Number: None

PATIENT
  Age: 58 Year
  Sex: Male

DRUGS (1)
  1. TALTZ [Suspect]
     Active Substance: IXEKIZUMAB
     Indication: Psoriasis
     Route: 058
     Dates: start: 201902

REACTIONS (5)
  - Depressed mood [None]
  - Malaise [None]
  - Kidney infection [None]
  - Pneumonia [None]
  - Pulmonary fibrosis [None]

NARRATIVE: CASE EVENT DATE: 20241201
